FAERS Safety Report 7520001-4 (Version None)
Quarter: 2011Q2

REPORT INFORMATION
  Report Type: 
  Country: None (occurrence: None)
  Receive Date: 20110602
  Receipt Date: 20110519
  Transmission Date: 20111010
  Serious: Yes (Other)
  Sender: FDA-Public Use
  Company Number: PHHY2011NL43611

PATIENT
  Sex: Female

DRUGS (2)
  1. OCTREOTIDE ACETATE [Suspect]
     Indication: CARCINOID SYNDROME
     Dosage: 1 MG/ML, BID
     Dates: start: 20110101
  2. SANDOSTATIN LAR [Suspect]
     Indication: CARCINOID SYNDROME

REACTIONS (4)
  - BOWEL MOVEMENT IRREGULARITY [None]
  - BLOOD COUNT ABNORMAL [None]
  - ABDOMINAL DISCOMFORT [None]
  - DIARRHOEA [None]
